FAERS Safety Report 7821735-4 (Version None)
Quarter: 2011Q4

REPORT INFORMATION
  Report Type: 
  Country: None (occurrence: None)
  Receive Date: 20111018
  Receipt Date: 20101103
  Transmission Date: 20120403
  Serious: No
  Sender: FDA-Public Use
  Company Number: US-ASTRAZENECA-2010SE52372

PATIENT
  Age: 50 Year
  Sex: Male

DRUGS (2)
  1. SYMBICORT [Suspect]
     Dosage: 160 MCG
     Route: 055
  2. SYMBICORT [Suspect]
     Dosage: 160 MCG
     Route: 055

REACTIONS (2)
  - SELF-MEDICATION [None]
  - PALPITATIONS [None]
